FAERS Safety Report 5236998-1 (Version None)
Quarter: 2007Q1

REPORT INFORMATION
  Report Type: 
  Country: None (occurrence: None)
  Receive Date: 20061208
  Receipt Date: 20050214
  Transmission Date: 20070707
  Serious: Yes (Other)
  Sender: FDA-Public Use
  Company Number: 2005UW02563

PATIENT
  Sex: Female

DRUGS (2)
  1. CRESTOR [Suspect]
     Dates: start: 20040101
  2. LIPITOR [Concomitant]

REACTIONS (5)
  - ADVERSE DRUG REACTION [None]
  - ARTHRALGIA [None]
  - HEADACHE [None]
  - MYALGIA [None]
  - PARAESTHESIA [None]
